FAERS Safety Report 19623296 (Version 5)
Quarter: 2021Q3

REPORT INFORMATION
  Report Type: Report from Study
  Country: JP (occurrence: JP)
  Receive Date: 20210729
  Receipt Date: 20210824
  Transmission Date: 20211014
  Serious: Yes (Other)
  Sender: FDA-Public Use
  Company Number: JP-LUNDBECK-DKLU3035867

PATIENT
  Age: 36 Year
  Sex: Female
  Weight: 51.3 kg

DRUGS (4)
  1. TRYPTANOL [Concomitant]
     Active Substance: AMITRIPTYLINE
     Indication: MIGRAINE
     Route: 048
  2. RIZATRIPTAN OD [Concomitant]
     Indication: HEADACHE
     Dosage: PRN
     Route: 048
     Dates: start: 20190709
  3. EPTINEZUMAB. [Suspect]
     Active Substance: EPTINEZUMAB
     Indication: MIGRAINE
     Dosage: WAS INFUSION COMPLETED IN FULL AS PLANNED (NO IMP LEFT IN THE BAG OR TUBE)? NO?VOLUME OF SOLUTION LE
     Route: 042
     Dates: start: 20210720, end: 20210720
  4. ETODOLAC. [Concomitant]
     Active Substance: ETODOLAC
     Indication: MIGRAINE
     Dosage: PRN
     Route: 048
     Dates: start: 20190507

REACTIONS (1)
  - Anaphylactic reaction [Recovered/Resolved]

NARRATIVE: CASE EVENT DATE: 20210720
